FAERS Safety Report 4405165-3 (Version None)
Quarter: 2004Q3

REPORT INFORMATION
  Report Type: 
  Country: None (occurrence: None)
  Receive Date: 20040723
  Receipt Date: 20040527
  Transmission Date: 20050211
  Serious: Yes (Other)
  Sender: FDA-Public Use
  Company Number: US-BRISTOL-MYERS SQUIBB COMPANY-12598975

PATIENT
  Age: 86 Year
  Sex: Female

DRUGS (4)
  1. MAXIPIME [Suspect]
     Indication: PSEUDOMONAS INFECTION
     Route: 042
     Dates: start: 20040520
  2. GENTAMICIN [Concomitant]
     Route: 042
     Dates: start: 20040520
  3. PREVACID [Concomitant]
  4. TRAZODONE HCL [Concomitant]

REACTIONS (7)
  - COMA [None]
  - DIARRHOEA [None]
  - EYE MOVEMENT DISORDER [None]
  - MUSCLE TWITCHING [None]
  - SKIN DISCOLOURATION [None]
  - TONGUE DISORDER [None]
  - VOMITING [None]
